FAERS Safety Report 5836546-9 (Version None)
Quarter: 2008Q3

REPORT INFORMATION
  Report Type: 
  Country: None (occurrence: None)
  Receive Date: 20080807
  Receipt Date: 20080730
  Transmission Date: 20090109
  Serious: Yes (Other)
  Sender: FDA-Public Use
  Company Number: CA-BAYER-200813686GPV

PATIENT
  Age: 67 Year
  Sex: Male

DRUGS (8)
  1. TESTOSTERONE (ANDRIOL) [Suspect]
     Indication: OSTEOPOROSIS
     Dosage: TOTAL DAILY DOSE: 80 MG
     Route: 065
     Dates: start: 20040101
  2. DIAMICRON [Concomitant]
     Indication: TYPE 2 DIABETES MELLITUS
     Route: 065
  3. METFORMIN HCL [Concomitant]
     Indication: TYPE 2 DIABETES MELLITUS
     Route: 065
  4. RAMIPRIL [Concomitant]
     Indication: HYPERTENSION
     Route: 065
  5. ATORVASTATIN [Concomitant]
     Indication: HYPERCHOLESTEROLAEMIA
     Route: 065
  6. ASPIRIN [Concomitant]
     Indication: DRUG USE FOR UNKNOWN INDICATION
     Route: 065
  7. OMEPRAZOLE [Concomitant]
     Indication: DEPRESSION
     Route: 065
  8. PAROXETINE HCL [Concomitant]
     Indication: DEPRESSION
     Route: 065

REACTIONS (4)
  - GAIT DISTURBANCE [None]
  - MUSCLE SPASMS [None]
  - MUSCULAR WEAKNESS [None]
  - SPINAL MUSCULAR ATROPHY [None]
